FAERS Safety Report 18525650 (Version 1)
Quarter: 2020Q4

REPORT INFORMATION
  Report Type: Other
  Country: FR (occurrence: FR)
  Receive Date: 20201120
  Receipt Date: 20201120
  Transmission Date: 20210114
  Serious: Yes (Other)
  Sender: FDA-Public Use
  Company Number: FR-ROCHE-2714477

PATIENT
  Sex: Male
  Weight: 85 kg

DRUGS (10)
  1. OMEPRAZOLE. [Concomitant]
     Active Substance: OMEPRAZOLE
  2. ATEZOLIZUMAB. [Suspect]
     Active Substance: ATEZOLIZUMAB
     Indication: HEPATOCELLULAR CARCINOMA
     Route: 041
     Dates: start: 20200827, end: 20200827
  3. RAMIPRIL. [Concomitant]
     Active Substance: RAMIPRIL
  4. LASILIX [Concomitant]
     Active Substance: FUROSEMIDE
  5. HUMALOG [Concomitant]
     Active Substance: INSULIN LISPRO
  6. BACLOFENE [Concomitant]
     Active Substance: BACLOFEN
  7. ABASAGLAR [Concomitant]
     Active Substance: INSULIN GLARGINE
  8. BEVACIZUMAB. [Suspect]
     Active Substance: BEVACIZUMAB
     Indication: HEPATOCELLULAR CARCINOMA
     Route: 065
     Dates: start: 20200827, end: 20200827
  9. LOVENOX [Suspect]
     Active Substance: ENOXAPARIN SODIUM
     Indication: ACUTE CORONARY SYNDROME
     Route: 065
  10. SERESTA [Concomitant]
     Active Substance: OXAZEPAM

REACTIONS (3)
  - Acute coronary syndrome [Unknown]
  - Varices oesophageal [Recovered/Resolved]
  - Oesophageal haemorrhage [Recovered/Resolved]
